FAERS Safety Report 10166704 (Version 1)
Quarter: 2014Q2

REPORT INFORMATION
  Report Type: Spontaneous
  Country: TW (occurrence: TW)
  Receive Date: 20140512
  Receipt Date: 20140512
  Transmission Date: 20141212
  Serious: Yes (Hospitalization)
  Sender: FDA-Public Use
  Company Number: TW-SA-2014SA057622

PATIENT
  Age: 68 Year
  Sex: Female

DRUGS (3)
  1. PLAVIX [Suspect]
     Indication: PRODUCT USED FOR UNKNOWN INDICATION
     Route: 048
     Dates: start: 20140303
  2. BOKEY [Concomitant]
     Route: 048
  3. NOVOMIX [Concomitant]
     Dosage: DOSE:26 UNIT(S)

REACTIONS (1)
  - Coronary arterial stent insertion [Unknown]
